FAERS Safety Report 12601899 (Version 4)
Quarter: 2017Q2

REPORT INFORMATION
  Report Type: Spontaneous
  Country: FR (occurrence: FR)
  Receive Date: 20160728
  Receipt Date: 20170509
  Transmission Date: 20170830
  Serious: Yes (Hospitalization, Other)
  Sender: FDA-Public Use
  Company Number: FR-JNJFOC-20160719823

PATIENT
  Age: 52 Year
  Sex: Male

DRUGS (7)
  1. REMICADE [Suspect]
     Active Substance: INFLIXIMAB
     Indication: CROHN^S DISEASE
     Route: 042
     Dates: start: 2014
  2. IMUREL [Concomitant]
     Active Substance: AZATHIOPRINE SODIUM
     Route: 065
     Dates: start: 20121205
  3. REMICADE [Suspect]
     Active Substance: INFLIXIMAB
     Indication: CROHN^S DISEASE
     Route: 042
     Dates: end: 20120725
  4. REMICADE [Suspect]
     Active Substance: INFLIXIMAB
     Indication: CROHN^S DISEASE
     Route: 042
     Dates: start: 20120925
  5. METHOTREXATE. [Concomitant]
     Active Substance: METHOTREXATE
     Route: 065
     Dates: start: 2011, end: 20120621
  6. CORTANCYL [Concomitant]
     Active Substance: PREDNISONE
     Route: 065
     Dates: start: 2012
  7. REMICADE [Suspect]
     Active Substance: INFLIXIMAB
     Indication: CROHN^S DISEASE
     Dosage: REMICADE 100MG
     Route: 042
     Dates: start: 2011

REACTIONS (8)
  - Angular cheilitis [Recovered/Resolved]
  - Rhinitis [Recovered/Resolved]
  - Rash pustular [Unknown]
  - Nasal crusting [Recovered/Resolved]
  - Folliculitis [Recovered/Resolved]
  - Bacterial disease carrier [Unknown]
  - Hordeolum [Unknown]
  - Hospitalisation [Unknown]

NARRATIVE: CASE EVENT DATE: 201210
